FAERS Safety Report 20480274 (Version 1)
Quarter: 2022Q1

REPORT INFORMATION
  Report Type: Spontaneous
  Country: US (occurrence: None)
  Receive Date: 20220215
  Receipt Date: 20220215
  Transmission Date: 20220423
  Serious: Yes (Other)
  Sender: FDA-Public Use
  Company Number: None

PATIENT
  Age: 41 Year
  Sex: Female
  Weight: 64 kg

DRUGS (4)
  1. DEVICE [Suspect]
     Active Substance: DEVICE
  2. 8015 PC Unit [Concomitant]
  3. 8100 Large Volume Pump [Concomitant]
  4. FENTANYL [Suspect]
     Active Substance: FENTANYL

REACTIONS (4)
  - Incorrect product administration duration [None]
  - Blood pressure decreased [None]
  - Heart rate [None]
  - Device malfunction [None]

NARRATIVE: CASE EVENT DATE: 20190311
